FAERS Safety Report 21018274 (Version 1)
Quarter: 2022Q2

REPORT INFORMATION
  Report Type: Spontaneous
  Country: US (occurrence: None)
  Receive Date: 20220627
  Receipt Date: 20220627
  Transmission Date: 20220721
  Serious: Yes (Other)
  Sender: FDA-Public Use
  Company Number: None

PATIENT
  Age: 30 Year
  Sex: Female

DRUGS (4)
  1. MAKENA [Suspect]
     Active Substance: HYDROXYPROGESTERONE CAPROATE
     Indication: Pregnancy
     Dosage: FREQUENCY : WEEKLY;?
     Route: 030
     Dates: start: 20220603, end: 20220624
  2. NIFEDIPINE [Concomitant]
     Active Substance: NIFEDIPINE
  3. labetlol [Concomitant]
  4. AMLODIPINE BESYLATE [Concomitant]

REACTIONS (5)
  - Hypersensitivity [None]
  - Injection site rash [None]
  - Injection site swelling [None]
  - Injection site erythema [None]
  - Injection site pain [None]

NARRATIVE: CASE EVENT DATE: 20220624
